FAERS Safety Report 24846668 (Version 1)
Quarter: 2025Q1

REPORT INFORMATION
  Report Type: Spontaneous
  Country: US (occurrence: US)
  Receive Date: 20250115
  Receipt Date: 20250115
  Transmission Date: 20250408
  Serious: No
  Sender: FERRING
  Company Number: US-FERRINGPH-2024FE06412

PATIENT
  Age: 65 Year
  Sex: Female
  Weight: 57.143 kg

DRUGS (1)
  1. CLENPIQ [Suspect]
     Active Substance: ANHYDROUS CITRIC ACID\MAGNESIUM OXIDE\SODIUM PICOSULFATE
     Indication: Bowel preparation
     Route: 065
     Dates: start: 202411, end: 202411

REACTIONS (9)
  - Oropharyngeal pain [Unknown]
  - Malaise [Unknown]
  - Fatigue [Not Recovered/Not Resolved]
  - Throat irritation [Not Recovered/Not Resolved]
  - Pharyngeal erythema [Recovering/Resolving]
  - Vomiting [Unknown]
  - Contraindicated product administered [Unknown]
  - Incorrect dose administered [Unknown]
  - Product use complaint [Unknown]

NARRATIVE: CASE EVENT DATE: 20241101
